FAERS Safety Report 6891543-X (Version None)
Quarter: 2010Q3

REPORT INFORMATION
  Report Type: 
  Country: None (occurrence: None)
  Receive Date: 20100731
  Receipt Date: 20070921
  Transmission Date: 20110219
  Serious: No
  Sender: FDA-Public Use
  Company Number: US-PFIZER INC-2007012207

PATIENT
  Sex: Female
  Weight: 48.99 kg

DRUGS (8)
  1. NORVASC [Suspect]
     Indication: HYPERTENSION
     Route: 048
     Dates: start: 20050907
  2. NORVASC [Suspect]
  3. ALLOPURINOL [Concomitant]
  4. ATENOLOL [Concomitant]
  5. DIOVANE [Concomitant]
  6. OMEPRAZOLE [Concomitant]
  7. FOSAMAX [Concomitant]
  8. GABAPENTIN [Concomitant]

REACTIONS (1)
  - STOMATITIS [None]
